FAERS Safety Report 7440832-9 (Version None)
Quarter: 2011Q2

REPORT INFORMATION
  Report Type: 
  Country: None (occurrence: None)
  Receive Date: 20110427
  Receipt Date: 20110329
  Transmission Date: 20111010
  Serious: No
  Sender: FDA-Public Use
  Company Number: US-BAYER-2011-023382

PATIENT
  Sex: Female
  Weight: 60 kg

DRUGS (1)
  1. ALEVE (CAPLET) [Suspect]
     Indication: NEURALGIA
     Dosage: UNK
     Route: 048
     Dates: end: 20110201

REACTIONS (9)
  - INSOMNIA [None]
  - DERMATITIS [None]
  - PRURITUS [None]
  - WEIGHT INCREASED [None]
  - FOOD INTOLERANCE [None]
  - TEMPERATURE INTOLERANCE [None]
  - CHILLS [None]
  - OEDEMA [None]
  - URTICARIA [None]
